FAERS Safety Report 4548267-3 (Version None)
Quarter: 2005Q1

REPORT INFORMATION
  Report Type: 
  Country: None (occurrence: None)
  Receive Date: 20050106
  Receipt Date: 20050106
  Transmission Date: 20050727
  Serious: Yes (Life-Threatening, Hospitalization)
  Sender: FDA-Public Use
  Company Number: None

PATIENT
  Age: 28 Year
  Sex: Female
  Weight: 61.2356 kg

DRUGS (1)
  1. SEASONALE [Suspect]
     Dosage: 1 PILL   DAILY   ORAL
     Route: 048
     Dates: start: 20040725, end: 20040913

REACTIONS (1)
  - PULMONARY EMBOLISM [None]
